FAERS Safety Report 7732444-4 (Version None)
Quarter: 2011Q3

REPORT INFORMATION
  Report Type: 
  Country: None (occurrence: None)
  Receive Date: 20110906
  Receipt Date: 20110825
  Transmission Date: 20111222
  Serious: Yes (Hospitalization, Other)
  Sender: FDA-Public Use
  Company Number: US-ASTRAZENECA-2011SE49158

PATIENT
  Age: 64 Year
  Sex: Female

DRUGS (1)
  1. ARIMIDEX [Suspect]
     Route: 048

REACTIONS (4)
  - LIGAMENT SPRAIN [None]
  - FALL [None]
  - BLOOD PRESSURE ABNORMAL [None]
  - HEPATIC CIRRHOSIS [None]
